FAERS Safety Report 5567196-X (Version None)
Quarter: 2007Q4

REPORT INFORMATION
  Report Type: 
  Country: None (occurrence: None)
  Receive Date: 20071219
  Receipt Date: 20071212
  Transmission Date: 20080405
  Serious: Yes (Life-Threatening, Hospitalization, Other)
  Sender: FDA-Public Use
  Company Number: GB-BAYER-200711414BNE

PATIENT
  Age: 24 Year
  Sex: Male

DRUGS (14)
  1. ADALAT [Suspect]
     Indication: DRUG USE FOR UNKNOWN INDICATION
     Dosage: TOTAL DAILY DOSE: 60 MG  UNIT DOSE: 60 MG
     Route: 048
     Dates: start: 20020801
  2. SIMVASTATIN [Suspect]
     Dosage: TOTAL DAILY DOSE: 10 MG
     Route: 048
     Dates: start: 20040416
  3. SIROLIMUS [Suspect]
     Dosage: TOTAL DAILY DOSE: 2 MG
     Route: 048
     Dates: start: 20030818
  4. SIMVASTATIN [Concomitant]
     Dosage: TOTAL DAILY DOSE: 10 MG
     Route: 048
     Dates: start: 20040416
  5. SIROLIMUS [Concomitant]
     Dosage: TOTAL DAILY DOSE: 2 MG
     Route: 048
     Dates: start: 20030818
  6. AZITHROMYCIN [Concomitant]
     Dosage: TOTAL DAILY DOSE: 250 MG
     Route: 048
     Dates: start: 20040416
  7. COTRIM [Concomitant]
     Dosage: TOTAL DAILY DOSE: 480 MG
     Route: 048
     Dates: start: 20020801
  8. FERROUS GLUCONATE [Concomitant]
     Dosage: TOTAL DAILY DOSE: 1200 MG
     Route: 048
     Dates: start: 20070723
  9. FUROSEMIDE [Concomitant]
     Dosage: TOTAL DAILY DOSE: 40 MG
     Route: 048
     Dates: start: 20050712
  10. LANTUS [Concomitant]
     Route: 058
     Dates: start: 20050913
  11. NOVORAPID [Concomitant]
     Route: 058
     Dates: start: 20050913
  12. OMEPRAZOLE [Concomitant]
     Dosage: TOTAL DAILY DOSE: 20 MG
     Route: 048
     Dates: start: 20061215
  13. PREDNISOLONE [Concomitant]
     Dosage: TOTAL DAILY DOSE: 10 MG
     Route: 048
     Dates: start: 20020801
  14. TACROLIMUS [Concomitant]
     Dosage: TOTAL DAILY DOSE: 1 MG
     Route: 048
     Dates: start: 20020813

REACTIONS (1)
  - NEPHROTIC SYNDROME [None]
